FAERS Safety Report 9260395 (Version 1)
Quarter: 2013Q2

REPORT INFORMATION
  Report Type: Spontaneous
  Country: US (occurrence: US)
  Receive Date: 20130429
  Receipt Date: 20130429
  Transmission Date: 20140414
  Serious: Yes (Hospitalization)
  Sender: FDA-Public Use
  Company Number: US-BAYER-2013-051228

PATIENT
  Age: 32 Year
  Sex: Female

DRUGS (3)
  1. BEYAZ [Suspect]
  2. YASMIN [Suspect]
  3. YAZ [Suspect]

REACTIONS (1)
  - Acute myocardial infarction [None]
